FAERS Safety Report 7600246-5 (Version None)
Quarter: 2011Q3

REPORT INFORMATION
  Report Type: 
  Country: None (occurrence: None)
  Receive Date: 20110711
  Receipt Date: 20110701
  Transmission Date: 20111222
  Serious: Yes (Hospitalization)
  Sender: FDA-Public Use
  Company Number: FR-SANOFI-AVENTIS-2011SA041790

PATIENT
  Age: 85 Year
  Sex: Male

DRUGS (4)
  1. PRIMPERAN TAB [Suspect]
     Route: 048
     Dates: start: 20110301, end: 20110420
  2. ESOMEPRAZOLE MAGNESIUM [Suspect]
     Route: 048
     Dates: end: 20110401
  3. MULTAQ [Suspect]
     Route: 048
     Dates: start: 20110301, end: 20110420
  4. ERYTHROMYCIN STEARATE [Suspect]
     Route: 048
     Dates: start: 20110301, end: 20110420

REACTIONS (1)
  - THROMBOCYTOPENIA [None]
